FAERS Safety Report 6721637-0 (Version None)
Quarter: 2010Q2

REPORT INFORMATION
  Report Type: 
  Country: None (occurrence: None)
  Receive Date: 20100512
  Receipt Date: 20100505
  Transmission Date: 20101027
  Serious: Yes (Hospitalization)
  Sender: FDA-Public Use
  Company Number: PHHY2010FR20381

PATIENT
  Sex: Male
  Weight: 70 kg

DRUGS (2)
  1. MYCOPHENOLIC ACID [Suspect]
     Indication: RENAL TRANSPLANT
     Dosage: 720 MG/ DAY
     Route: 048
  2. PROGRAF [Suspect]
     Indication: RENAL TRANSPLANT
     Dosage: 5 MG/ DAY
     Route: 048

REACTIONS (3)
  - ANXIETY [None]
  - BACK PAIN [None]
  - HYPERTENSIVE CRISIS [None]
